FAERS Safety Report 19609108 (Version 1)
Quarter: 2021Q3

REPORT INFORMATION
  Report Type: Spontaneous
  Country: US (occurrence: US)
  Receive Date: 20210725
  Receipt Date: 20210725
  Transmission Date: 20211014
  Serious: No
  Sender: FDA-Public Use
  Company Number: None

PATIENT
  Age: 36 Year
  Sex: Female
  Weight: 76.5 kg

DRUGS (6)
  1. AMITRIPTYLINE 50MG [Concomitant]
     Active Substance: AMITRIPTYLINE
  2. UBRELVY 50?100MG [Concomitant]
  3. TRAZODONE [Concomitant]
     Active Substance: TRAZODONE HYDROCHLORIDE
  4. VITAMIN C GUMMY [Concomitant]
  5. DILTIAZEM ER [Suspect]
     Active Substance: DILTIAZEM
     Indication: SUPRAVENTRICULAR TACHYCARDIA
     Dates: start: 20210724
  6. MULTIVITAMIN [Concomitant]
     Active Substance: VITAMINS

REACTIONS (5)
  - Nausea [None]
  - Dizziness [None]
  - Vomiting [None]
  - Headache [None]
  - Chills [None]

NARRATIVE: CASE EVENT DATE: 20210725
